FAERS Safety Report 10381965 (Version 1)
Quarter: 2014Q1

REPORT INFORMATION
  Report Type: Spontaneous
  Country: US (occurrence: None)
  Receive Date: 20140306
  Receipt Date: 20140306
  Transmission Date: 20141002
  Serious: Yes (Other)
  Sender: FDA-Public Use
  Company Number: 163-21880-13112776

PATIENT
  Age: 62 Year
  Sex: Male

DRUGS (3)
  1. REVLIMID [Suspect]
     Indication: PLASMA CELL MYELOMA
     Dosage: 14 IN 21D
     Route: 048
     Dates: start: 201311
  2. LASIX (FUROSEMIDE) [Concomitant]
  3. POTASSIUM (POTASSIUM) [Concomitant]

REACTIONS (3)
  - Weight decreased [None]
  - Oedema peripheral [None]
  - Drug dose omission [None]
